FAERS Safety Report 20941377 (Version 1)
Quarter: 2022Q2

REPORT INFORMATION
  Report Type: Report from Study
  Country: US (occurrence: US)
  Receive Date: 20220610
  Receipt Date: 20220610
  Transmission Date: 20220720
  Serious: Yes (Hospitalization)
  Sender: FDA-Public Use
  Company Number: US-ABBVIE-22K-163-4425657-00

PATIENT
  Age: 66 Year
  Sex: Female
  Weight: 61.290 kg

DRUGS (1)
  1. CREON [Suspect]
     Active Substance: PANCRELIPASE AMYLASE\PANCRELIPASE LIPASE\PANCRELIPASE PROTEASE
     Indication: Metabolic disorder prophylaxis
     Dosage: 2-3 CAPSULES WITH MEALS, 1 CAPSULE WITH SNACK
     Route: 048
     Dates: start: 2013

REACTIONS (14)
  - Arachnoid cyst [Recovering/Resolving]
  - Hypoaesthesia [Recovered/Resolved]
  - Flatulence [Not Recovered/Not Resolved]
  - Steatorrhoea [Not Recovered/Not Resolved]
  - Abdominal distension [Not Recovered/Not Resolved]
  - Musculoskeletal disorder [Recovered/Resolved]
  - Neuropathy peripheral [Recovered/Resolved]
  - Anal incontinence [Recovered/Resolved]
  - Insomnia [Recovered/Resolved]
  - Sciatic nerve neuropathy [Recovered/Resolved]
  - Abnormal faeces [Not Recovered/Not Resolved]
  - Unevaluable event [Not Recovered/Not Resolved]
  - Abdominal pain [Not Recovered/Not Resolved]
  - Back disorder [Recovered/Resolved]

NARRATIVE: CASE EVENT DATE: 20210301
